FAERS Safety Report 24020083 (Version 1)
Quarter: 2024Q2

REPORT INFORMATION
  Report Type: Spontaneous
  Country: US (occurrence: None)
  Receive Date: 20240627
  Receipt Date: 20240627
  Transmission Date: 20240716
  Serious: Yes (Hospitalization)
  Sender: FDA-Public Use
  Company Number: None

PATIENT
  Age: 60 Year
  Sex: Male

DRUGS (4)
  1. GAMMAKED [Suspect]
     Active Substance: HUMAN IMMUNOGLOBULIN G
     Dosage: SEE IMAAGE??FREQUENCY: 2 DAYS EVERY 3WEEKS???
     Route: 042
     Dates: start: 202310
  2. Mycophenolate VIOFETIL [Concomitant]
  3. RYSTIGGO SDV [Concomitant]
  4. MYCOPHENOLATE MOFETIL [Concomitant]
     Active Substance: MYCOPHENOLATE MOFETIL

REACTIONS (2)
  - Myasthenia gravis [None]
  - Myasthenia gravis crisis [None]

NARRATIVE: CASE EVENT DATE: 20240412
